FAERS Safety Report 8477957-5 (Version None)
Quarter: 2012Q2

REPORT INFORMATION
  Report Type: 
  Country: None (occurrence: None)
  Receive Date: 20120629
  Receipt Date: 20120626
  Transmission Date: 20120825
  Serious: Yes (Hospitalization)
  Sender: FDA-Public Use
  Company Number: FR-PFIZER INC-2012152829

PATIENT
  Age: 83 Year
  Sex: Female

DRUGS (6)
  1. AMLODIPINE BESYLATE [Suspect]
     Dosage: 5 MG, 1X/DAY
     Route: 048
     Dates: start: 20110717, end: 20110824
  2. NOVONORM [Suspect]
     Dosage: 1 MG, UNK
     Route: 048
     Dates: start: 20110717, end: 20110723
  3. NOVOLOG MIX 70/30 [Suspect]
     Dosage: UNK
     Route: 058
     Dates: start: 20110717, end: 20110823
  4. DILTIAZEM HCL [Suspect]
     Dosage: 60 MG, UNK
     Route: 048
     Dates: start: 20110717, end: 20110824
  5. AUGMENTIN '125' [Suspect]
     Indication: PNEUMONIA
     Dosage: UNK
     Route: 048
     Dates: start: 20110717, end: 20110727
  6. AUGMENTIN '125' [Suspect]
     Dosage: UNK
     Route: 048
     Dates: start: 20110819, end: 20110822

REACTIONS (1)
  - DRUG RASH WITH EOSINOPHILIA AND SYSTEMIC SYMPTOMS [None]
